FAERS Safety Report 17523621 (Version 1)
Quarter: 2020Q1

REPORT INFORMATION
  Report Type: Spontaneous
  Country: US (occurrence: US)
  Receive Date: 20200311
  Receipt Date: 20200311
  Transmission Date: 20200409
  Serious: No
  Sender: FDA-Public Use
  Company Number: US-009507513-2002USA005896

PATIENT
  Sex: Male

DRUGS (4)
  1. TEMODAR [Suspect]
     Active Substance: TEMOZOLOMIDE
     Indication: ANAPLASTIC OLIGODENDROGLIOMA
     Dosage: UNK
  2. PROCARBAZINE [Suspect]
     Active Substance: PROCARBAZINE
     Indication: ANAPLASTIC OLIGODENDROGLIOMA
     Dosage: UNK
  3. LOMUSTINE. [Suspect]
     Active Substance: LOMUSTINE
     Indication: ANAPLASTIC OLIGODENDROGLIOMA
     Dosage: UNK
  4. VINCRISTINE [Suspect]
     Active Substance: VINCRISTINE
     Indication: ANAPLASTIC OLIGODENDROGLIOMA
     Dosage: UNK

REACTIONS (2)
  - Hypermutation [Unknown]
  - Off label use [Unknown]
